FAERS Safety Report 4339520-7 (Version None)
Quarter: 2004Q2

REPORT INFORMATION
  Report Type: 
  Country: None (occurrence: None)
  Receive Date: 20040412
  Receipt Date: 20040329
  Transmission Date: 20050107
  Serious: Yes (Death, Life-Threatening)
  Sender: FDA-Public Use
  Company Number: GB-JNJFOC-20040306533

PATIENT
  Age: 44 Year
  Sex: Female

DRUGS (3)
  1. FENTANYL [Suspect]
     Indication: CANCER PAIN
     Dosage: SEE IMAGE
     Route: 062
  2. MORPHINE [Suspect]
     Indication: CANCER PAIN
     Dosage: 139 MG
  3. DIAZEPAM [Suspect]
     Indication: DRUG USE FOR UNKNOWN INDICATION
     Dosage: 2 MG, 1 IN 1 DAY

REACTIONS (11)
  - CONFUSIONAL STATE [None]
  - CYANOSIS [None]
  - DRUG INTERACTION [None]
  - LOWER RESPIRATORY TRACT INFECTION [None]
  - LUNG CONSOLIDATION [None]
  - METASTASES TO BONE [None]
  - METASTASES TO LIVER [None]
  - RESPIRATORY DEPRESSION [None]
  - SEDATION [None]
  - SOMNOLENCE [None]
  - WHEEZING [None]
